FAERS Safety Report 4525429-2 (Version None)
Quarter: 2004Q4

REPORT INFORMATION
  Report Type: 
  Country: None (occurrence: None)
  Receive Date: 20041213
  Receipt Date: 20041202
  Transmission Date: 20050328
  Serious: Yes (Other)
  Sender: FDA-Public Use
  Company Number: ES-GLAXOSMITHKLINE-B0360093A

PATIENT
  Age: 51 Year
  Sex: Female
  Weight: 62.3 kg

DRUGS (3)
  1. AVANDAMET [Suspect]
     Dosage: 500MG TWICE PER DAY
     Route: 048
     Dates: start: 20041118
  2. MOTILIUM [Suspect]
     Indication: DYSPEPSIA
     Dosage: 1TAB THREE TIMES PER DAY
     Route: 048
     Dates: start: 20031201
  3. ACOVIL [Suspect]
     Dosage: 5MG PER DAY
     Route: 048
     Dates: start: 20041118

REACTIONS (2)
  - RETINAL ARTERY THROMBOSIS [None]
  - VISUAL ACUITY REDUCED [None]
